FAERS Safety Report 4574560-4 (Version None)
Quarter: 2005Q1

REPORT INFORMATION
  Report Type: 
  Country: None (occurrence: None)
  Receive Date: 20050208
  Receipt Date: 20031218
  Transmission Date: 20050727
  Serious: No
  Sender: FDA-Public Use
  Company Number: US-GLAXOSMITHKLINE-A0493046A

PATIENT
  Sex: Male

DRUGS (6)
  1. PAXIL [Suspect]
     Indication: DEPRESSION
     Dosage: 20MG PER DAY
     Route: 048
     Dates: start: 19980610
  2. SINEQUAN [Concomitant]
  3. BUSPAR [Concomitant]
  4. AMBIEN [Concomitant]
  5. TRANXENE [Concomitant]
     Indication: ANXIETY
  6. TRIMOX [Concomitant]
     Indication: ERECTILE DYSFUNCTION

REACTIONS (1)
  - DRUG WITHDRAWAL SYNDROME [None]
